FAERS Safety Report 6684015-9 (Version None)
Quarter: 2010Q2

REPORT INFORMATION
  Report Type: 
  Country: None (occurrence: None)
  Receive Date: 20100413
  Receipt Date: 20090706
  Transmission Date: 20101027
  Serious: No
  Sender: FDA-Public Use
  Company Number: 2009-00426

PATIENT
  Age: 61 Year
  Sex: Male
  Weight: 99.7913 kg

DRUGS (4)
  1. ZICAM COLD REMEDY GEL SWABS [Suspect]
     Dosage: SPORADIC- 3-4 YEARS
  2. ZICAM COLD REMEDY GEL SWABS [Suspect]
     Dosage: SPORADIC- 3-4 YEARS
  3. ZICAM COLD REMEDY GEL SWABS [Suspect]
     Dosage: SPORADIC- 3-4 YEARS
  4. ALLOPURINOL [Concomitant]

REACTIONS (1)
  - ANOSMIA [None]
